FAERS Safety Report 22950780 (Version 6)
Quarter: 2023Q4

REPORT INFORMATION
  Report Type: Report from Study
  Country: US (occurrence: US)
  Receive Date: 20230916
  Receipt Date: 20231204
  Transmission Date: 20240109
  Serious: Yes (Life-Threatening, Other)
  Sender: FDA-Public Use
  Company Number: US-UCBSA-2023040360

PATIENT
  Sex: Female
  Weight: 122.9 kg

DRUGS (50)
  1. CERTOLIZUMAB PEGOL [Suspect]
     Active Substance: CERTOLIZUMAB PEGOL
     Indication: Psoriatic arthropathy
     Dosage: 400 MILLIGRAM, EV 4 WEEKS
     Route: 058
     Dates: start: 20230727, end: 2023
  2. OZEMPIC [Suspect]
     Active Substance: SEMAGLUTIDE
     Indication: Type 2 diabetes mellitus
     Dosage: 0.25 MILLIGRAM, WEEKLY (QW)- WEDNESDAY
     Dates: start: 20230816
  3. OZEMPIC [Suspect]
     Active Substance: SEMAGLUTIDE
     Dosage: 0.50 MILLIGRAM, WEEKLY (QW)- WEDNESDAY
     Dates: start: 2023
  4. VALSARTAN [Concomitant]
     Active Substance: VALSARTAN
     Indication: Chronic kidney disease
     Dosage: 40 MILLIGRAM, ONCE DAILY (QD) (EACH AM)
     Dates: start: 20211101
  5. MAGNESIUM [Concomitant]
     Active Substance: MAGNESIUM
     Indication: Muscle spasms
     Dosage: 400 MILLIGRAM, 2X/DAY (BID) 1 AFTER LUNCH AND 1 AFTER DINNER
     Dates: start: 20230911
  6. XANAX [Concomitant]
     Active Substance: ALPRAZOLAM
     Indication: Anxiety disorder
     Dosage: 1 MILLIGRAM, 3 EACH DAY, AS NEEDED (PRN)
  7. ATENOLOL [Concomitant]
     Active Substance: ATENOLOL
     Indication: Nasopharyngitis
     Dosage: 50 MILLIGRAM, 1 EACH AM (SINCE BIRTH)
  8. ATENOLOL [Concomitant]
     Active Substance: ATENOLOL
     Indication: Arrhythmia
  9. ASPIRIN [Concomitant]
     Active Substance: ASPIRIN
     Indication: Product used for unknown indication
     Dosage: 81 MILLIGRAM, (1 EACH AM) ONCE DAILY (QD)
     Dates: start: 20180515
  10. DEXILANT [Concomitant]
     Active Substance: DEXLANSOPRAZOLE
     Indication: Reflux laryngitis
     Dosage: 60 MILLIGRAM, (1 EACH PM)  ONCE DAILY (QD)
  11. FLUTICASONE PROPIONATE [Concomitant]
     Active Substance: FLUTICASONE PROPIONATE
     Indication: Product used for unknown indication
     Dosage: 50 MILLIGRAM, (SPRAY IN EACH NOSTRIL EVERY AM) ONCE DAILY (QD)
     Route: 045
     Dates: start: 20220520
  12. FLUVOXAMINE MALEATE [Concomitant]
     Active Substance: FLUVOXAMINE MALEATE
     Indication: Obsessive-compulsive disorder
     Dosage: 150 MILLIGRAM, ONCE DAILY (QD)
  13. FLUVOXAMINE MALEATE [Concomitant]
     Active Substance: FLUVOXAMINE MALEATE
     Indication: Depression
     Dosage: 100 MILLIGRAM, ONCE DAILY (QD) AT PM
     Dates: start: 20230727
  14. GLIPIZIDE [Concomitant]
     Active Substance: GLIPIZIDE
     Indication: Type 2 diabetes mellitus
     Dosage: 5 MILLIGRAM, ONCE DAILY (QD) (TAKE 1 EACH AM WITH BREAKFAST)
     Dates: start: 20220723
  15. METFORMIN HYDROCHLORIDE [Concomitant]
     Active Substance: METFORMIN HYDROCHLORIDE
     Indication: Type 2 diabetes mellitus
     Dosage: 500 MILLIGRAM, 3 X DAY/1 WITH EACH MEAL
     Dates: start: 20211028
  16. METFORMIN HYDROCHLORIDE [Concomitant]
     Active Substance: METFORMIN HYDROCHLORIDE
     Dosage: 500 MILLIGRAM, 3 X DAY/1 WITH EACH MEAL
     Dates: start: 20211202
  17. METFORMIN HYDROCHLORIDE [Concomitant]
     Active Substance: METFORMIN HYDROCHLORIDE
     Dosage: 500 MILLIGRAM, 3 X DAY/1 WITH EACH MEAL
     Dates: start: 20230324
  18. SEROQUEL [Concomitant]
     Active Substance: QUETIAPINE FUMARATE
     Indication: Insomnia
     Dosage: 25 MILLIGRAM, (1 EACH PM) ONCE DAILY (QD)
     Dates: start: 20220428
  19. SEROQUEL [Concomitant]
     Active Substance: QUETIAPINE FUMARATE
     Dosage: 50 MILLIGRAM, (1 EACH PM) ONCE DAILY (QD)
     Dates: start: 20230210
  20. EVISTA [Concomitant]
     Active Substance: RALOXIFENE HYDROCHLORIDE
     Indication: Osteopenia
     Dosage: 60 MILLIGRAM, ONCE DAILY (QD)(1 EACH PM)
     Dates: start: 20211102
  21. ROSUVASTATIN CALCIUM [Concomitant]
     Active Substance: ROSUVASTATIN CALCIUM
     Indication: Blood triglycerides decreased
     Dosage: 20 MILLIGRAM, (1 EACH AM) ONCE DAILY (QD)
     Dates: start: 20190710
  22. ROSUVASTATIN CALCIUM [Concomitant]
     Active Substance: ROSUVASTATIN CALCIUM
     Dosage: 40 MILLIGRAM, (1 EACH AM) ONCE DAILY (QD)
     Dates: start: 20201107
  23. TRELEGY ELLIPTA [Concomitant]
     Active Substance: FLUTICASONE FUROATE\UMECLIDINIUM BROMIDE\VILANTEROL TRIFENATATE
     Indication: Bronchial hyperreactivity
     Dosage: 200 MILLIGRAM, 62.5 MCG/25 MEG INHALE 1 PUFF EACH MORNING
  24. TRELEGY ELLIPTA [Concomitant]
     Active Substance: FLUTICASONE FUROATE\UMECLIDINIUM BROMIDE\VILANTEROL TRIFENATATE
     Indication: Post-acute COVID-19 syndrome
  25. AMITRIPTYLINE [Concomitant]
     Active Substance: AMITRIPTYLINE
     Indication: Osteoarthritis
     Dosage: 10 MILLIGRAM, 1 EACH PM, ONCE DAILY (QD)
     Dates: start: 20220726
  26. AMITRIPTYLINE [Concomitant]
     Active Substance: AMITRIPTYLINE
     Indication: Fibromyalgia
  27. CYMBALTA [Concomitant]
     Active Substance: DULOXETINE HYDROCHLORIDE
     Indication: Fibromyalgia
     Dosage: 30 MILLIGRAM, 1 EVERY AM, ONCE DAILY (QD)
  28. CYMBALTA [Concomitant]
     Active Substance: DULOXETINE HYDROCHLORIDE
     Indication: Osteoarthritis
     Dosage: 60 MILLIGRAM, 1 EVERY AM, ONCE DAILY (QD)
     Dates: start: 20220428
  29. ROPINIROLE HYDROCHLORIDE [Concomitant]
     Active Substance: ROPINIROLE HYDROCHLORIDE
     Indication: Restless legs syndrome
     Dosage: 1 MILLIGRAM, 2 EVERY PM
     Dates: start: 20210202
  30. VITAMIN D3 [Concomitant]
     Active Substance: CHOLECALCIFEROL
     Indication: Product used for unknown indication
     Dosage: 800 IU, 1 EACH AM
     Dates: start: 20220815
  31. RESTASIS [Concomitant]
     Active Substance: CYCLOSPORINE
     Indication: Dry eye
     Dosage: 1 DROP, 2X/DAY (BID) TO BOTH EYE
     Route: 047
  32. RESTASIS [Concomitant]
     Active Substance: CYCLOSPORINE
     Indication: Sjogren^s syndrome
  33. SYSTANE (HYPROMELLOSE 2910 (4000 MPA.S)) [Concomitant]
     Active Substance: HYPROMELLOSE 2910 (4000 MPA.S)
     Indication: Dry eye
     Dosage: OTC 3 TO 4 TIMES DAILY EACH EYE
     Route: 047
  34. TYRVAYA [Concomitant]
     Active Substance: VARENICLINE TARTRATE
     Indication: Dry eye
     Dosage: 0.03 MILLIGRAM, 2X/DAY (BID)
  35. VESICARE [Concomitant]
     Active Substance: SOLIFENACIN SUCCINATE
     Indication: Hypertonic bladder
     Dosage: 10 MILLIGRAM, 1 EACH PM, ONCE DAILY (QD)
  36. VESICARE [Concomitant]
     Active Substance: SOLIFENACIN SUCCINATE
     Indication: Pollakiuria
  37. VESICARE [Concomitant]
     Active Substance: SOLIFENACIN SUCCINATE
     Indication: Atrophic vulvovaginitis
  38. MYRBETRIQ [Concomitant]
     Active Substance: MIRABEGRON
     Indication: Product used for unknown indication
     Dosage: 50 MILLIGRAM, 1 EACH AM, ONCE DAILY (QD)
  39. LEVOTHYROXINE [Concomitant]
     Active Substance: LEVOTHYROXINE
     Indication: Thyroid cancer
     Dosage: 150 MICROGRAM, ONCE DAILY (QD)
     Dates: start: 20210623
  40. LEVOTHYROXINE [Concomitant]
     Active Substance: LEVOTHYROXINE
     Indication: Hyperparathyroidism
  41. LEVOTHYROXINE [Concomitant]
     Active Substance: LEVOTHYROXINE
     Indication: Post procedural hypothyroidism
  42. FLUOCINONIDE [Concomitant]
     Active Substance: FLUOCINONIDE
     Indication: Rash
     Dosage: APPLY 1-2 TIMES DAILY TO HANDS AS NEEDED
  43. FLUOCINONIDE [Concomitant]
     Active Substance: FLUOCINONIDE
     Indication: Condition aggravated
  44. FLUOCINONIDE [Concomitant]
     Active Substance: FLUOCINONIDE
     Indication: Psoriasis
  45. FLUOCINONIDE [Concomitant]
     Active Substance: FLUOCINONIDE
     Indication: Eczema
  46. TORSEMIDE [Concomitant]
     Active Substance: TORSEMIDE
     Indication: Product used for unknown indication
     Dosage: UNK
  47. KETOCONAZOLE [Concomitant]
     Active Substance: KETOCONAZOLE
     Indication: Psoriasis
     Dosage: APPLY UNDER BREASTS + FOLDS OF SKIN
  48. KETOCONAZOLE [Concomitant]
     Active Substance: KETOCONAZOLE
     Indication: Eczema
  49. TRIAMCINOLONE [Concomitant]
     Active Substance: TRIAMCINOLONE
     Indication: Stasis dermatitis
     Dosage: APPLY 2 TIMES DAILY
  50. TRIAMCINOLONE [Concomitant]
     Active Substance: TRIAMCINOLONE
     Indication: Rash

REACTIONS (42)
  - Arthralgia [Not Recovered/Not Resolved]
  - Joint swelling [Not Recovered/Not Resolved]
  - Gait disturbance [Not Recovered/Not Resolved]
  - Psoriatic arthropathy [Recovered/Resolved]
  - Synovial cyst [Unknown]
  - Cyst removal [Unknown]
  - Pain in extremity [Not Recovered/Not Resolved]
  - Fall [Not Recovered/Not Resolved]
  - Blood glucose increased [Recovered/Resolved]
  - Swelling [Unknown]
  - Gastrooesophageal reflux disease [Not Recovered/Not Resolved]
  - Headache [Unknown]
  - Hypersomnia [Unknown]
  - Peripheral swelling [Unknown]
  - Decreased appetite [Unknown]
  - Lymphoedema [Unknown]
  - Dry mouth [Unknown]
  - Dry eye [Unknown]
  - Red blood cell sedimentation rate increased [Unknown]
  - Muscle spasms [Unknown]
  - Depression [Unknown]
  - Emotional disorder [Unknown]
  - Fatigue [Unknown]
  - Diabetic diet [Unknown]
  - Initial insomnia [Unknown]
  - Feeling abnormal [Unknown]
  - Impaired quality of life [Unknown]
  - Drug ineffective [Unknown]
  - Lipoma [Unknown]
  - Nerve injury [Unknown]
  - Peroneal nerve palsy [Unknown]
  - Plantar fasciitis [Unknown]
  - Exostosis [Unknown]
  - Vascular insufficiency [Unknown]
  - Hypoaesthesia [Unknown]
  - Malaise [Unknown]
  - Cellulitis [Not Recovered/Not Resolved]
  - Dyspnoea [Unknown]
  - Catheter placement [Unknown]
  - Grief reaction [Unknown]
  - Constipation [Recovered/Resolved]
  - Pain [Not Recovered/Not Resolved]

NARRATIVE: CASE EVENT DATE: 20230101
